FAERS Safety Report 8179371-9 (Version None)
Quarter: 2012Q1

REPORT INFORMATION
  Report Type: 
  Country: None (occurrence: None)
  Receive Date: 20120302
  Receipt Date: 20120227
  Transmission Date: 20120608
  Serious: Yes (Death)
  Sender: FDA-Public Use
  Company Number: CO-JNJFOC-20120108739

PATIENT
  Age: 92 Year
  Sex: Female

DRUGS (3)
  1. TRAMADOL HCL [Concomitant]
     Route: 048
  2. ALPRAZOLAM [Concomitant]
     Dosage: 0.25 (UNITS UNSPECIFIED) EVERY 12 HOURS
     Route: 048
  3. RISPERDAL [Suspect]
     Indication: SENILE DEMENTIA
     Route: 048
     Dates: start: 20100101

REACTIONS (1)
  - MALNUTRITION [None]
